FAERS Safety Report 12448162 (Version 2)
Quarter: 2016Q2

REPORT INFORMATION
  Report Type: Spontaneous
  Country: US (occurrence: US)
  Receive Date: 20160608
  Receipt Date: 20160616
  Transmission Date: 20160815
  Serious: No
  Sender: FDA-Public Use
  Company Number: US-BIOGEN-2016BI00242142

PATIENT
  Sex: Female

DRUGS (1)
  1. TECFIDERA [Suspect]
     Active Substance: DIMETHYL FUMARATE
     Indication: MULTIPLE SCLEROSIS
     Route: 048
     Dates: start: 20140421, end: 20150901

REACTIONS (12)
  - Heart rate increased [Unknown]
  - Fatigue [Recovered/Resolved]
  - Cognitive disorder [Not Recovered/Not Resolved]
  - Multiple sclerosis [Recovered/Resolved]
  - Headache [Recovered/Resolved]
  - Decreased immune responsiveness [Not Recovered/Not Resolved]
  - Post-traumatic stress disorder [Unknown]
  - Urinary tract infection [Recovered/Resolved]
  - Drug intolerance [Unknown]
  - Hypotension [Unknown]
  - Feeling cold [Unknown]
  - Anxiety [Unknown]
